FAERS Safety Report 16102748 (Version 1)
Quarter: 2019Q1

REPORT INFORMATION
  Report Type: Spontaneous
  Country: US (occurrence: US)
  Receive Date: 20190321
  Receipt Date: 20190321
  Transmission Date: 20190418
  Serious: No
  Sender: FDA-Public Use
  Company Number: US-ARRAY-2019-05002

PATIENT

DRUGS (1)
  1. BRAFTOVI [Suspect]
     Active Substance: ENCORAFENIB
     Indication: METASTASIS
     Dosage: 450 MG, UNK
     Route: 048
     Dates: start: 20190115

REACTIONS (3)
  - Product use in unapproved indication [Unknown]
  - Off label use [Unknown]
  - Muscle tightness [Unknown]

NARRATIVE: CASE EVENT DATE: 20190115
